FAERS Safety Report 6572653-3 (Version None)
Quarter: 2010Q1

REPORT INFORMATION
  Report Type: 
  Country: None (occurrence: None)
  Receive Date: 20100205
  Receipt Date: 20100128
  Transmission Date: 20100710
  Serious: Yes (Hospitalization)
  Sender: FDA-Public Use
  Company Number: FR-ABBOTT-10P-056-0622893-00

PATIENT
  Age: 34 Year
  Sex: Male

DRUGS (6)
  1. HUMIRA [Suspect]
     Indication: ANKYLOSING SPONDYLITIS
     Route: 058
     Dates: start: 20090501
  2. DAFALGAN [Concomitant]
     Indication: DRUG USE FOR UNKNOWN INDICATION
  3. SERESTA [Concomitant]
     Indication: DRUG USE FOR UNKNOWN INDICATION
  4. RUBOZINC [Concomitant]
     Indication: DRUG USE FOR UNKNOWN INDICATION
  5. CONTRAMAL [Concomitant]
     Indication: DRUG USE FOR UNKNOWN INDICATION
  6. COLCHICINE [Concomitant]
     Indication: DRUG USE FOR UNKNOWN INDICATION

REACTIONS (5)
  - DERMATITIS PSORIASIFORM [None]
  - LYMPHADENOPATHY [None]
  - RASH MACULO-PAPULAR [None]
  - RASH PRURITIC [None]
  - RASH PUSTULAR [None]
